FAERS Safety Report 12002986 (Version 1)
Quarter: 2016Q1

REPORT INFORMATION
  Report Type: Report from Study
  Country: CA (occurrence: CA)
  Receive Date: 20160204
  Receipt Date: 20160204
  Transmission Date: 20160526
  Serious: Yes (Life-Threatening, Hospitalization)
  Sender: FDA-Public Use
  Company Number: CA-CELGENE-CAN-2015121591

PATIENT
  Age: 68 Year
  Sex: Male

DRUGS (34)
  1. ISTODAX [Suspect]
     Active Substance: ROMIDEPSIN
     Indication: DIFFUSE LARGE B-CELL LYMPHOMA
     Dosage: 12 MILLIGRAM/SQ. METER
     Route: 041
     Dates: start: 20151123, end: 20151123
  2. AMOXICILLIN. [Concomitant]
     Active Substance: AMOXICILLIN
     Indication: INFECTION
     Route: 065
     Dates: start: 20151101, end: 20151107
  3. PANTOPRAZOLE [Concomitant]
     Active Substance: PANTOPRAZOLE SODIUM
     Indication: DYSPEPSIA
     Route: 065
  4. SUNNYBROOK MOUTHWASH [Concomitant]
     Indication: MUCOSAL INFLAMMATION
     Route: 065
     Dates: start: 20151207
  5. CEFTRIAXONE. [Concomitant]
     Active Substance: CEFTRIAXONE
     Indication: INFECTION
     Route: 065
     Dates: start: 20151209, end: 20151211
  6. RAMIPRIL. [Concomitant]
     Active Substance: RAMIPRIL
     Indication: HYPERTENSION
     Route: 065
     Dates: start: 20151126
  7. LASIX [Concomitant]
     Active Substance: FUROSEMIDE
     Indication: DIURETIC THERAPY
     Route: 065
     Dates: start: 20151206, end: 20151206
  8. POTASSIUM CHLORIDE. [Concomitant]
     Active Substance: POTASSIUM CHLORIDE
     Indication: HYPOKALAEMIA
     Route: 065
     Dates: start: 20151203, end: 20151203
  9. PANTOPRAZOLE [Concomitant]
     Active Substance: PANTOPRAZOLE SODIUM
     Indication: GASTROOESOPHAGEAL REFLUX DISEASE
  10. LACTULOSE. [Concomitant]
     Active Substance: LACTULOSE
     Indication: CONSTIPATION PROPHYLAXIS
     Route: 065
     Dates: start: 20151203, end: 20151203
  11. GEMCITABINE [Suspect]
     Active Substance: GEMCITABINE\GEMCITABINE HYDROCHLORIDE
     Indication: DIFFUSE LARGE B-CELL LYMPHOMA
     Route: 041
     Dates: start: 20151123, end: 20151123
  12. ACETAMINOPHEN. [Concomitant]
     Active Substance: ACETAMINOPHEN
     Indication: HEADACHE
     Dosage: 40 MILLIGRAM
     Route: 065
  13. AZITHROMYCIN ANHYDROUS. [Concomitant]
     Active Substance: AZITHROMYCIN ANHYDROUS
     Indication: INFECTION
     Route: 065
     Dates: start: 20151209, end: 20151211
  14. NORMAL SALINE [Concomitant]
     Active Substance: SODIUM CHLORIDE
     Indication: PROPHYLAXIS AGAINST DEHYDRATION
     Route: 065
     Dates: start: 20151128, end: 20151128
  15. DEXAMETHASONE. [Suspect]
     Active Substance: DEXAMETHASONE
     Indication: DIFFUSE LARGE B-CELL LYMPHOMA
     Dosage: 166 MILLIGRAM
     Route: 048
     Dates: start: 20151123, end: 20151123
  16. TRANEXAMIC ACID. [Concomitant]
     Active Substance: TRANEXAMIC ACID
     Indication: EPISTAXIS
     Route: 065
     Dates: start: 20151126
  17. HYDROCHLOROTHIAZIDE. [Concomitant]
     Active Substance: HYDROCHLOROTHIAZIDE
     Indication: HYPERTENSION
     Route: 065
     Dates: start: 20151126
  18. MAGNESIUM SULFATE. [Concomitant]
     Active Substance: MAGNESIUM SULFATE
     Indication: ATRIAL FIBRILLATION
     Route: 065
     Dates: start: 20151209, end: 20151209
  19. ROBITUSSIN EXTRA STRENGTH [Concomitant]
     Indication: COUGH
     Route: 065
     Dates: start: 201512, end: 201512
  20. NORMAL SALINE [Concomitant]
     Active Substance: SODIUM CHLORIDE
     Route: 065
     Dates: start: 20151130, end: 20151202
  21. CISPLATIN. [Suspect]
     Active Substance: CISPLATIN
     Indication: DIFFUSE LARGE B-CELL LYMPHOMA
     Dosage: 2223 MILLIGRAM
     Route: 041
     Dates: start: 20151123, end: 20151123
  22. ACETAMINOPHEN. [Concomitant]
     Active Substance: ACETAMINOPHEN
     Indication: HEADACHE
  23. VANCOMYCIN [Concomitant]
     Active Substance: VANCOMYCIN
     Indication: INFECTION
     Route: 065
     Dates: start: 20151211, end: 20151214
  24. POLYMYXIN B. [Concomitant]
     Active Substance: POLYMYXIN B
     Indication: INFECTION PROPHYLAXIS
     Route: 065
     Dates: start: 20151127
  25. SALINE ORAL OTC [Concomitant]
     Active Substance: SODIUM CHLORIDE
     Indication: EPISTAXIS
     Route: 045
     Dates: start: 20151127
  26. VITAMIN K [Concomitant]
     Active Substance: PHYTONADIONE
     Indication: HYPOKALAEMIA
     Route: 065
     Dates: start: 20151128
  27. FAMCICLOVIR. [Concomitant]
     Active Substance: FAMCICLOVIR
     Indication: HERPES ZOSTER
     Route: 065
     Dates: start: 20151212, end: 20151218
  28. PIPERACILLIN/TAZOBACTAM [Concomitant]
     Active Substance: PIPERACILLIN SODIUM\TAZOBACTAM SODIUM
     Indication: INFECTION PROPHYLAXIS
     Route: 065
     Dates: start: 20151204, end: 20151204
  29. SENNOSIDES. [Concomitant]
     Active Substance: SENNOSIDES
     Indication: CONSTIPATION PROPHYLAXIS
     Route: 065
     Dates: start: 20151203
  30. NORMAL SALINE [Concomitant]
     Active Substance: SODIUM CHLORIDE
     Indication: HYPONATRAEMIA
     Route: 065
     Dates: start: 20151125, end: 20151125
  31. ALLOPURINOL. [Concomitant]
     Active Substance: ALLOPURINOL
     Indication: PROPHYLAXIS
     Route: 065
     Dates: end: 20151212
  32. CIPROFLOXACIN. [Concomitant]
     Active Substance: CIPROFLOXACIN
     Indication: INFECTION
     Route: 065
     Dates: start: 20151101, end: 20151107
  33. METOPROLOL. [Concomitant]
     Active Substance: METOPROLOL
     Indication: HYPERTENSION
     Route: 065
     Dates: start: 20151203
  34. PHYTONADIONE. [Concomitant]
     Active Substance: PHYTONADIONE
     Indication: HYPOKALAEMIA
     Route: 065
     Dates: start: 20151203, end: 20151209

REACTIONS (1)
  - Hyponatraemia [Recovered/Resolved]

NARRATIVE: CASE EVENT DATE: 20151203
